FAERS Safety Report 6121197-1 (Version None)
Quarter: 2009Q1

REPORT INFORMATION
  Report Type: 
  Country: None (occurrence: None)
  Receive Date: 20090313
  Receipt Date: 20090226
  Transmission Date: 20090719
  Serious: No
  Sender: FDA-Public Use
  Company Number: PPC200900008

PATIENT
  Age: 70 Year
  Sex: Male

DRUGS (1)
  1. ACYCLOVIR SODIUM [Suspect]
     Dosage: 500 MG, DAILY IN TWO DIVIDED DOSES, INTRAVENOUS
     Route: 042

REACTIONS (14)
  - AGITATION [None]
  - BLOOD CREATINE INCREASED [None]
  - BLOOD CREATININE INCREASED [None]
  - CONFUSIONAL STATE [None]
  - DELIRIUM [None]
  - DISORIENTATION [None]
  - HAEMODIALYSIS [None]
  - HALLUCINATIONS, MIXED [None]
  - INSOMNIA [None]
  - MEMORY IMPAIRMENT [None]
  - NEUROTOXICITY [None]
  - PSYCHOTIC DISORDER [None]
  - PYREXIA [None]
  - REFUSAL OF TREATMENT BY RELATIVE [None]
